FAERS Safety Report 10244019 (Version 1)
Quarter: 2014Q2

REPORT INFORMATION
  Report Type: Spontaneous
  Country: US (occurrence: None)
  Receive Date: 20140616
  Receipt Date: 20140616
  Transmission Date: 20141212
  Serious: No
  Sender: FDA-Public Use
  Company Number: None

PATIENT
  Age: 38 Year
  Sex: Female
  Weight: 117.94 kg

DRUGS (1)
  1. HYDROCODONE [Suspect]
     Indication: TOOTHACHE
     Dosage: 1 TABLET EVERY 4-6 HRS?AS NEEDED ?TAKEN BY MOUTH
     Route: 048
     Dates: start: 20140605, end: 20140610

REACTIONS (4)
  - Ear pain [None]
  - Ear congestion [None]
  - Sinus disorder [None]
  - Cough [None]
